FAERS Safety Report 16244908 (Version 2)
Quarter: 2019Q3

REPORT INFORMATION
  Report Type: Spontaneous
  Country: GB (occurrence: GB)
  Receive Date: 20190426
  Receipt Date: 20190917
  Transmission Date: 20191004
  Serious: Yes (Hospitalization, Other)
  Sender: FDA-Public Use
  Company Number: GB-GILEAD-2019-0402729

PATIENT
  Age: 27 Year
  Sex: Male

DRUGS (1)
  1. YESCARTA [Suspect]
     Active Substance: AXICABTAGENE CILOLEUCEL
     Indication: PRIMARY MEDIASTINAL LARGE B-CELL LYMPHOMA
     Route: 065

REACTIONS (4)
  - Pleural effusion [Unknown]
  - Therapy non-responder [Unknown]
  - Neurotoxicity [Recovered/Resolved]
  - Primary mediastinal large B-cell lymphoma [Not Recovered/Not Resolved]
